FAERS Safety Report 10843775 (Version 1)
Quarter: 2015Q1

REPORT INFORMATION
  Report Type: Spontaneous
  Country: US (occurrence: US)
  Receive Date: 20150220
  Receipt Date: 20150220
  Transmission Date: 20150721
  Serious: No
  Sender: FDA-Public Use
  Company Number: US-ABBVIE-14P-163-1261765-00

PATIENT
  Age: 26 Year
  Sex: Female
  Weight: 198.4 kg

DRUGS (2)
  1. HUMIRA [Suspect]
     Active Substance: ADALIMUMAB
     Indication: PSORIASIS
     Dosage: INITIAL DOSE
     Dates: start: 20140709, end: 20140709
  2. HUMIRA [Suspect]
     Active Substance: ADALIMUMAB
     Dates: start: 20140716

REACTIONS (2)
  - Animal scratch [Recovering/Resolving]
  - Wrong technique in drug usage process [Recovered/Resolved]

NARRATIVE: CASE EVENT DATE: 20140716
